FAERS Safety Report 10279548 (Version 1)
Quarter: 2014Q3

REPORT INFORMATION
  Report Type: Spontaneous
  Country: US (occurrence: None)
  Receive Date: 20140702
  Receipt Date: 20140702
  Transmission Date: 20150326
  Serious: Yes (Hospitalization)
  Sender: FDA-Public Use
  Company Number: None

PATIENT
  Age: 69 Year
  Sex: Male
  Weight: 82.7 kg

DRUGS (2)
  1. DEXTROSE/HEPARIN [Suspect]
     Active Substance: DEXTROSE\HEPARIN
     Indication: PULMONARY EMBOLISM
     Route: 042
     Dates: start: 20140507, end: 20140512
  2. DEXTROSE/HEPARIN [Suspect]
     Active Substance: DEXTROSE\HEPARIN
     Indication: DEEP VEIN THROMBOSIS
     Route: 042
     Dates: start: 20140507, end: 20140512

REACTIONS (5)
  - Pulmonary embolism [None]
  - Haematochezia [None]
  - Lower gastrointestinal haemorrhage [None]
  - Activated partial thromboplastin time prolonged [None]
  - Anaemia [None]

NARRATIVE: CASE EVENT DATE: 20140512
